FAERS Safety Report 6064194-7 (Version None)
Quarter: 2009Q1

REPORT INFORMATION
  Report Type: 
  Country: None (occurrence: None)
  Receive Date: 20090204
  Receipt Date: 20090129
  Transmission Date: 20090719
  Serious: Yes (Hospitalization, Disabling)
  Sender: FDA-Public Use
  Company Number: US-BRISTOL-MYERS SQUIBB COMPANY-14492748

PATIENT
  Age: 41 Year
  Sex: Male

DRUGS (10)
  1. EFAVIRENZ [Suspect]
     Route: 048
  2. STAVUDINE [Suspect]
     Route: 048
  3. RALTEGRAVIR [Suspect]
     Route: 048
  4. LAMIVUDINE [Suspect]
     Route: 048
  5. LOPINAVIR AND RITONAVIR [Suspect]
     Route: 065
  6. TENOFOVIR DISOPROXIL FUMARATE [Suspect]
     Route: 048
  7. RITONAVIR [Suspect]
     Route: 048
  8. TENOFOVIR DF + EMTRICITABINE [Suspect]
     Route: 048
  9. DARUNAVIR [Suspect]
     Route: 048
  10. ENFUVIRTIDE [Suspect]
     Route: 048

REACTIONS (7)
  - ABDOMINAL PAIN [None]
  - AIDS ENCEPHALOPATHY [None]
  - BLOOD ALKALINE PHOSPHATASE INCREASED [None]
  - DEPRESSION [None]
  - FALL [None]
  - MOVEMENT DISORDER [None]
  - STRESS [None]
